FAERS Safety Report 9343731 (Version 2)
Quarter: 2013Q3

REPORT INFORMATION
  Report Type: Spontaneous
  Country: CR (occurrence: CR)
  Receive Date: 20130612
  Receipt Date: 20130903
  Transmission Date: 20140515
  Serious: Yes (Other)
  Sender: FDA-Public Use
  Company Number: PHHY2013CR059294

PATIENT
  Age: 40 Year
  Sex: Male

DRUGS (1)
  1. CATAFLAM [Suspect]
     Indication: OTORHINOLARYNGOLOGICAL SURGERY
     Dosage: 2 DF EVERY 4 HR

REACTIONS (2)
  - Pharyngeal injury [Unknown]
  - Overdose [Unknown]
